FAERS Safety Report 4736951-8 (Version None)
Quarter: 2005Q3

REPORT INFORMATION
  Report Type: 
  Country: None (occurrence: None)
  Receive Date: 20050803
  Receipt Date: 20050729
  Transmission Date: 20060218
  Serious: Yes (Other)
  Sender: FDA-Public Use
  Company Number: 200511580BCC

PATIENT
  Age: 77 Year
  Sex: Male
  Weight: 84.8226 kg

DRUGS (3)
  1. ASPIRIN [Suspect]
     Indication: ANALGESIC EFFECT
     Dosage: PRN, ORAL
     Route: 048
  2. ASPIRIN [Suspect]
     Indication: FATIGUE
     Dosage: PRN, ORAL
     Route: 048
  3. FLAX SEED OIL [Concomitant]

REACTIONS (8)
  - BLOOD PRESSURE INCREASED [None]
  - BURNING SENSATION [None]
  - DIZZINESS [None]
  - FATIGUE [None]
  - MONOPLEGIA [None]
  - PAIN IN EXTREMITY [None]
  - SCOLIOSIS [None]
  - TREATMENT NONCOMPLIANCE [None]
